FAERS Safety Report 15398079 (Version 1)
Quarter: 2018Q3

REPORT INFORMATION
  Report Type: Spontaneous
  Country: IT (occurrence: IT)
  Receive Date: 20180918
  Receipt Date: 20180918
  Transmission Date: 20181010
  Serious: Yes (Other)
  Sender: FDA-Public Use
  Company Number: IT-TEVA-2018-IT-955638

PATIENT
  Age: 42 Year
  Sex: Female

DRUGS (2)
  1. PRITOR 40 MG TABLETS [Concomitant]
     Route: 048
  2. AMOXICILLINA/ACIDO CLAVULANICO [Suspect]
     Active Substance: AMOXICILLIN\CLAVULANIC ACID
     Indication: SINUSITIS
     Dosage: 3 GRAM DAILY;
     Route: 065

REACTIONS (2)
  - Erythema [Unknown]
  - Inflammation [Unknown]

NARRATIVE: CASE EVENT DATE: 20180825
